FAERS Safety Report 6376485-0 (Version None)
Quarter: 2009Q3

REPORT INFORMATION
  Report Type: 
  Country: None (occurrence: None)
  Receive Date: 20090925
  Receipt Date: 20090918
  Transmission Date: 20100115
  Serious: Yes (Hospitalization)
  Sender: FDA-Public Use
  Company Number: US-JNJFOC-20090405000

PATIENT
  Sex: Male

DRUGS (4)
  1. RETIN-A MICRO [Suspect]
     Route: 061
  2. RETIN-A MICRO [Suspect]
     Indication: ACNE
     Route: 061
  3. DIAMOX SR [Concomitant]
     Route: 065
  4. ERYTHROMYCIN [Concomitant]
     Indication: ACNE
     Route: 065

REACTIONS (5)
  - DIPLOPIA [None]
  - HEADACHE [None]
  - MILLER FISHER SYNDROME [None]
  - PRODUCT QUALITY ISSUE [None]
  - VOMITING [None]
